FAERS Safety Report 9445053 (Version 4)
Quarter: 2015Q1

REPORT INFORMATION
  Report Type: Report from Study
  Country: JP (occurrence: JP)
  Receive Date: 20130807
  Receipt Date: 20150311
  Transmission Date: 20150721
  Serious: Yes (Hospitalization)
  Sender: FDA-Public Use
  Company Number: JP-009507513-1308JPN002795

PATIENT
  Age: 64 Year
  Sex: Male
  Weight: 68.9 kg

DRUGS (2)
  1. GLACTIV [Suspect]
     Active Substance: SITAGLIPTIN
     Indication: TYPE 2 DIABETES MELLITUS
     Dosage: 50 MG, QD AFTER BREAKFAST
     Route: 048
     Dates: start: 20120627
  2. MICAMLO [Concomitant]
     Active Substance: AMLODIPINE BESYLATE\TELMISARTAN

REACTIONS (4)
  - Large intestine polyp [Recovered/Resolved]
  - Constipation [Recovered/Resolved]
  - Cerebral infarction [Recovered/Resolved]
  - Hyperlipidaemia [Recovered/Resolved]

NARRATIVE: CASE EVENT DATE: 20130225
